FAERS Safety Report 13657667 (Version 1)
Quarter: 2017Q2

REPORT INFORMATION
  Report Type: Other
  Country: GB (occurrence: KR)
  Receive Date: 20170615
  Receipt Date: 20170615
  Transmission Date: 20170830
  Serious: Yes (Disabling, Other)
  Sender: FDA-Public Use
  Company Number: KR-INTERNATIONAL MEDICATION SYSTEMS, LIMITED-2022104

PATIENT
  Age: 47 Year
  Sex: Female

DRUGS (2)
  1. EPINEPHRINE 1:100,000 [Suspect]
     Active Substance: EPINEPHRINE
     Route: 058
  2. LIDOCAINE 2% [Concomitant]
     Active Substance: LIDOCAINE
     Route: 058

REACTIONS (2)
  - Retinal haemorrhage [None]
  - Retinal artery occlusion [Not Recovered/Not Resolved]
